FAERS Safety Report 5494854-8 (Version None)
Quarter: 2007Q4

REPORT INFORMATION
  Report Type: 
  Country: None (occurrence: None)
  Receive Date: 20071022
  Receipt Date: 20071005
  Transmission Date: 20080405
  Serious: Yes (Other)
  Sender: FDA-Public Use
  Company Number: ACO_00390_2007

PATIENT
  Sex: Female

DRUGS (1)
  1. SIRDALUD (SIRDALUD - TIZANIDINE HYDROCHLORIDE) (NOT SPECIFIED) [Suspect]
     Indication: DRUG USE FOR UNKNOWN INDICATION
     Dosage: (2 MG QD)

REACTIONS (2)
  - EMOTIONAL DISTRESS [None]
  - HEMIPARESIS [None]
